FAERS Safety Report 4510063-0 (Version None)
Quarter: 2004Q4

REPORT INFORMATION
  Report Type: 
  Country: None (occurrence: None)
  Receive Date: 20041124
  Receipt Date: 20041019
  Transmission Date: 20050328
  Serious: Yes (Death, Other)
  Sender: FDA-Public Use
  Company Number: PHNR2004AU01535

PATIENT
  Age: 69 Year
  Sex: Male

DRUGS (7)
  1. ZOMETA [Suspect]
     Indication: METASTASES TO BONE
     Dosage: 4 MG, UNK
     Dates: start: 20040504
  2. ZOMETA [Suspect]
     Dates: start: 20040601
  3. MAXOLON [Concomitant]
  4. CELEBREX [Concomitant]
  5. PANAMAX [Concomitant]
  6. MORPHINE [Concomitant]
  7. DEXAMETHASONE [Concomitant]

REACTIONS (9)
  - BLOOD CALCIUM DECREASED [None]
  - BLOOD POTASSIUM INCREASED [None]
  - BLOOD TRIGLYCERIDES INCREASED [None]
  - BLOOD UREA INCREASED [None]
  - CALCIUM IONISED DECREASED [None]
  - DISEASE PROGRESSION [None]
  - METASTASES TO CENTRAL NERVOUS SYSTEM [None]
  - PLATELET COUNT INCREASED [None]
  - PROSTATE CANCER METASTATIC [None]
